FAERS Safety Report 9982058 (Version 2)
Quarter: 2014Q1

REPORT INFORMATION
  Report Type: Report from Study
  Country: US (occurrence: US)
  Receive Date: 20140307
  Receipt Date: 20140307
  Transmission Date: 20141002
  Serious: Yes (Hospitalization, Other)
  Sender: FDA-Public Use
  Company Number: US-ABBVIE-13P-163-1143653-00

PATIENT
  Age: 54 Year
  Sex: Male

DRUGS (13)
  1. HUMIRA [Suspect]
     Indication: RHEUMATOID ARTHRITIS
     Dates: start: 201203
  2. METHOTREXATE [Concomitant]
     Indication: RHEUMATOID ARTHRITIS
     Route: 048
  3. AMLODIPINE [Concomitant]
     Indication: HYPERTENSION
     Route: 048
  4. BENAZEPRIL [Concomitant]
     Indication: HYPERTENSION
     Route: 048
  5. MOBIC [Concomitant]
     Indication: RHEUMATOID ARTHRITIS
     Route: 048
  6. KLONOPIN [Concomitant]
     Indication: ANXIETY
     Route: 048
  7. CITALOPRAM [Concomitant]
     Indication: ANXIETY
     Route: 048
  8. FOLIC ACID [Concomitant]
     Indication: PRODUCT USED FOR UNKNOWN INDICATION
     Route: 048
  9. CLONIDINE [Concomitant]
     Indication: HYPERTENSION
     Route: 048
  10. HYDROCHLOROTHIAZIDE [Concomitant]
     Indication: HYPERTENSION
     Route: 048
  11. FOSAMAX [Concomitant]
     Indication: OSTEOPOROSIS
     Route: 048
  12. CALCIUM [Concomitant]
     Indication: OSTEOPOROSIS
     Route: 048
  13. TRAZODONE [Concomitant]
     Indication: ANXIETY
     Route: 048

REACTIONS (3)
  - Infected dermal cyst [Recovered/Resolved]
  - Cellulitis orbital [Recovered/Resolved]
  - Arthralgia [Recovered/Resolved]
